FAERS Safety Report 5400816-9 (Version None)
Quarter: 2007Q3

REPORT INFORMATION
  Report Type: 
  Country: None (occurrence: None)
  Receive Date: 20070730
  Receipt Date: 20070716
  Transmission Date: 20080115
  Serious: Yes (Hospitalization)
  Sender: FDA-Public Use
  Company Number: GB-SHR-GB-2007-021412

PATIENT
  Age: 37 Year
  Sex: Female
  Weight: 85 kg

DRUGS (2)
  1. MIRENA [Suspect]
     Indication: CONTRACEPTION
     Dosage: 20 A?G/DAY, CONT
     Route: 015
     Dates: start: 20040216
  2. DICLOFENAC SODIUM [Concomitant]
     Indication: PAIN
     Dosage: 50 MG, TDS
     Route: 048
     Dates: start: 20040326

REACTIONS (2)
  - INTERVERTEBRAL DISCITIS [None]
  - IUCD COMPLICATION [None]
